FAERS Safety Report 8327056-8 (Version None)
Quarter: 2012Q2

REPORT INFORMATION
  Report Type: 
  Country: None (occurrence: None)
  Receive Date: 20120501
  Receipt Date: 20111219
  Transmission Date: 20120825
  Serious: No
  Sender: FDA-Public Use
  Company Number: US-SANOFI-AVENTIS-2011SA083201

PATIENT
  Age: 66 Year
  Sex: Female

DRUGS (1)
  1. APIDRA [Suspect]
     Indication: TYPE 2 DIABETES MELLITUS
     Dosage: FREQUENCY: 1-2 TIMES DAILY DOSE:4 UNIT(S)
     Route: 058
     Dates: start: 20111201

REACTIONS (1)
  - DIARRHOEA [None]
